FAERS Safety Report 11289021 (Version 1)
Quarter: 2015Q3

REPORT INFORMATION
  Report Type: Spontaneous
  Country: US (occurrence: US)
  Receive Date: 20150721
  Receipt Date: 20150721
  Transmission Date: 20151125
  Serious: No
  Sender: FDA-Public Use
  Company Number: US-UNITED THERAPEUTICS-UNT-2015-000362

PATIENT
  Age: 42 Year
  Sex: Female
  Weight: 77.82 kg

DRUGS (1)
  1. REMODULIN [Suspect]
     Active Substance: TREPROSTINIL
     Indication: PULMONARY ARTERIAL HYPERTENSION
     Dosage: 0.012 ?G/KG/MIN, CONTINUING
     Route: 041
     Dates: start: 20150109

REACTIONS (11)
  - Rhinorrhoea [Unknown]
  - Cough [Unknown]
  - Malaise [Unknown]
  - Ear pain [Unknown]
  - Nasal congestion [Unknown]
  - Pyrexia [Unknown]
  - Sinus headache [Unknown]
  - Influenza [Unknown]
  - Injection site pain [Unknown]
  - Head discomfort [Unknown]
  - Pain in jaw [Unknown]

NARRATIVE: CASE EVENT DATE: 201501
